FAERS Safety Report 8263130-2 (Version None)
Quarter: 2012Q2

REPORT INFORMATION
  Report Type: 
  Country: None (occurrence: None)
  Receive Date: 20120405
  Receipt Date: 20120323
  Transmission Date: 20120825
  Serious: Yes (Other)
  Sender: FDA-Public Use
  Company Number: US-ELI_LILLY_AND_COMPANY-US201203007953

PATIENT
  Age: 64 Year
  Sex: Male

DRUGS (2)
  1. CYMBALTA [Suspect]
     Indication: BACK PAIN
     Dosage: 60 MG, QD
  2. LORTAB [Concomitant]
     Dosage: 10 MG, UNKNOWN

REACTIONS (2)
  - BLISTER [None]
  - IMPAIRED HEALING [None]
